FAERS Safety Report 5311110-9 (Version None)
Quarter: 2007Q2

REPORT INFORMATION
  Report Type: 
  Country: None (occurrence: None)
  Receive Date: 20070430
  Receipt Date: 20070312
  Transmission Date: 20071010
  Serious: Yes (Hospitalization)
  Sender: FDA-Public Use
  Company Number: US-SANOFI-SYNTHELABO-A03200702152

PATIENT
  Sex: Female

DRUGS (8)
  1. AMBIEN [Suspect]
     Indication: INSOMNIA
     Dosage: UNK
     Route: 065
  2. LANTUS [Concomitant]
     Indication: DRUG USE FOR UNKNOWN INDICATION
     Dosage: UNK
     Route: 065
  3. HUMALOG [Concomitant]
     Indication: DRUG USE FOR UNKNOWN INDICATION
     Dosage: UNK
     Route: 065
  4. NEURONTIN [Concomitant]
     Indication: DRUG USE FOR UNKNOWN INDICATION
     Dosage: UNK
     Route: 065
  5. ZOLOFT [Concomitant]
     Indication: DRUG USE FOR UNKNOWN INDICATION
     Dosage: UNK
     Route: 065
  6. DIOVAN HCT [Concomitant]
     Indication: DRUG USE FOR UNKNOWN INDICATION
     Dosage: UNK
     Route: 065
  7. AMBIEN [Suspect]
     Route: 048
     Dates: start: 20010501, end: 20060501
  8. LORTAB [Concomitant]
     Indication: DRUG USE FOR UNKNOWN INDICATION
     Dosage: UNK
     Route: 065

REACTIONS (27)
  - ABNORMAL BEHAVIOUR [None]
  - AMNESIA [None]
  - BACK PAIN [None]
  - COMMUNICATION DISORDER [None]
  - CONTUSION [None]
  - CONVULSION [None]
  - DEPRESSED LEVEL OF CONSCIOUSNESS [None]
  - DREAMY STATE [None]
  - DRUG WITHDRAWAL SYNDROME [None]
  - EATING DISORDER [None]
  - ELECTROENCEPHALOGRAM ABNORMAL [None]
  - FALL [None]
  - GAIT DISTURBANCE [None]
  - HAEMORRHAGE [None]
  - HALLUCINATION, VISUAL [None]
  - INCOHERENT [None]
  - JOINT INJURY [None]
  - LOSS OF CONSCIOUSNESS [None]
  - MOTOR DYSFUNCTION [None]
  - NEUROLOGICAL SYMPTOM [None]
  - PAIN [None]
  - PANIC DISORDER [None]
  - RENAL FAILURE [None]
  - ROAD TRAFFIC ACCIDENT [None]
  - SLEEP WALKING [None]
  - SPINAL FRACTURE [None]
  - THINKING ABNORMAL [None]
